FAERS Safety Report 12385790 (Version 1)
Quarter: 2016Q2

REPORT INFORMATION
  Report Type: Spontaneous
  Country: US (occurrence: US)
  Receive Date: 20160519
  Receipt Date: 20160519
  Transmission Date: 20160815
  Serious: No
  Sender: FDA-Public Use
  Company Number: US-MALLINCKRODT-T201505056

PATIENT
  Age: 21 Year
  Sex: Female
  Weight: 61 kg

DRUGS (4)
  1. CYMBALTA [Concomitant]
     Active Substance: DULOXETINE HYDROCHLORIDE
  2. LYRICA [Concomitant]
     Active Substance: PREGABALIN
  3. BENGAY ARTHRITIS PAIN RELIEVING [Concomitant]
     Active Substance: MENTHOL\METHYL SALICYLATE
     Dosage: PATCHES
  4. ACETAMINOPHEN\HYDROCODONE BITARTRATE [Suspect]
     Active Substance: ACETAMINOPHEN\HYDROCODONE BITARTRATE
     Indication: PROCEDURAL PAIN
     Dosage: 1 TAB Q4-6 HOURS
     Route: 048
     Dates: start: 201407

REACTIONS (4)
  - Drug screen negative [Not Recovered/Not Resolved]
  - Urinary incontinence [Not Recovered/Not Resolved]
  - Drug effect decreased [Not Recovered/Not Resolved]
  - Intentional product misuse [Not Recovered/Not Resolved]

NARRATIVE: CASE EVENT DATE: 201510
